FAERS Safety Report 12075493 (Version 2)
Quarter: 2016Q4

REPORT INFORMATION
  Report Type: Spontaneous
  Country: JP (occurrence: JP)
  Receive Date: 20160213
  Receipt Date: 20161028
  Transmission Date: 20170206
  Serious: Yes (Other)
  Sender: FDA-Public Use
  Company Number: JP-ACCORD-037863

PATIENT
  Sex: Male

DRUGS (5)
  1. NEDAPLATIN [Suspect]
     Active Substance: NEDAPLATIN
     Indication: DISEASE RECURRENCE
  2. DOCETAXEL. [Suspect]
     Active Substance: DOCETAXEL
     Indication: SQUAMOUS CELL CARCINOMA
     Dosage: 1 COURSE
  3. FLUOROURACIL. [Suspect]
     Active Substance: FLUOROURACIL
     Indication: SQUAMOUS CELL CARCINOMA
     Dosage: 1 COURSE
  4. CISPLATIN. [Suspect]
     Active Substance: CISPLATIN
     Indication: SQUAMOUS CELL CARCINOMA
     Dosage: 1 COURSE
  5. DOXORUBICIN [Suspect]
     Active Substance: DOXORUBICIN
     Indication: DISEASE RECURRENCE

REACTIONS (2)
  - Neutropenia [Unknown]
  - Adverse event [Unknown]
